FAERS Safety Report 4316239-X (Version None)
Quarter: 2004Q1

REPORT INFORMATION
  Report Type: 
  Country: None (occurrence: None)
  Receive Date: 20040312
  Receipt Date: 20040209
  Transmission Date: 20041129
  Serious: Yes (Hospitalization)
  Sender: FDA-Public Use
  Company Number: JP-ROCHE-358778

PATIENT
  Age: 17 Year
  Sex: Female
  Weight: 60 kg

DRUGS (1)
  1. TAMIFLU [Suspect]
     Route: 048
     Dates: start: 20040208, end: 20040208

REACTIONS (6)
  - DEHYDRATION [None]
  - DYSKINESIA [None]
  - MYOCLONUS [None]
  - NERVOUSNESS [None]
  - PYREXIA [None]
  - TREMOR [None]
